FAERS Safety Report 21937688 (Version 1)
Quarter: 2023Q1

REPORT INFORMATION
  Report Type: Spontaneous
  Country: CN (occurrence: CN)
  Receive Date: 20230201
  Receipt Date: 20230201
  Transmission Date: 20230418
  Serious: Yes (Other)
  Sender: FDA-Public Use
  Company Number: CN-PFIZER INC-PV202300018105

PATIENT
  Age: 93 Year
  Sex: Female
  Weight: 60 kg

DRUGS (3)
  1. NIRMATRELVIR\RITONAVIR [Suspect]
     Active Substance: NIRMATRELVIR\RITONAVIR
     Indication: COVID-19 treatment
     Dosage: 3 DF, 1X/DAY
     Route: 048
     Dates: start: 20230104, end: 20230107
  2. HERBALS [Suspect]
     Active Substance: HERBALS
     Indication: Detoxification
     Dosage: 5 G, 4X/DAY
     Route: 048
     Dates: start: 20230105, end: 20230113
  3. HERBALS [Suspect]
     Active Substance: HERBALS
     Indication: Prophylaxis

REACTIONS (6)
  - Haemorrhage subcutaneous [Unknown]
  - Coagulopathy [Unknown]
  - Ecchymosis [Unknown]
  - Diarrhoea [Recovered/Resolved]
  - Blood creatinine increased [Unknown]
  - Off label use [Unknown]

NARRATIVE: CASE EVENT DATE: 20230104
